FAERS Safety Report 25310971 (Version 1)
Quarter: 2025Q2

REPORT INFORMATION
  Report Type: Spontaneous
  Country: US (occurrence: US)
  Receive Date: 20250514
  Receipt Date: 20250514
  Transmission Date: 20250716
  Serious: Yes (Hospitalization)
  Sender: ACCORD
  Company Number: US-MLMSERVICE-20250501-PI496348-00203-1

PATIENT
  Age: 16 Year
  Sex: Female

DRUGS (1)
  1. LISINOPRIL [Suspect]
     Active Substance: LISINOPRIL
     Route: 048

REACTIONS (3)
  - Suicidal ideation [Unknown]
  - Anxiety [Unknown]
  - Intentional overdose [Unknown]
